FAERS Safety Report 7419050-6 (Version None)
Quarter: 2011Q2

REPORT INFORMATION
  Report Type: 
  Country: None (occurrence: None)
  Receive Date: 20110415
  Receipt Date: 20110406
  Transmission Date: 20111010
  Serious: Yes (Other)
  Sender: FDA-Public Use
  Company Number: PHHY2011PL29634

PATIENT
  Age: 52 Year

DRUGS (6)
  1. IMATINIB [Suspect]
     Indication: PROPHYLAXIS
  2. NILOTINIB [Suspect]
     Indication: PROPHYLAXIS
  3. IMATINIB [Suspect]
     Indication: CHRONIC MYELOID LEUKAEMIA
  4. DASATINIB [Suspect]
     Indication: CHRONIC MYELOID LEUKAEMIA
  5. DASATINIB [Suspect]
     Indication: PROPHYLAXIS
  6. NILOTINIB [Suspect]
     Indication: CHRONIC MYELOID LEUKAEMIA

REACTIONS (3)
  - TREATMENT FAILURE [None]
  - PANCYTOPENIA [None]
  - BONE MARROW FAILURE [None]
